FAERS Safety Report 4973826-3 (Version None)
Quarter: 2006Q2

REPORT INFORMATION
  Report Type: 
  Country: None (occurrence: None)
  Receive Date: 20060414
  Receipt Date: 20050824
  Transmission Date: 20061013
  Serious: Yes (Hospitalization)
  Sender: FDA-Public Use
  Company Number: US-MERCK-0508USA04109

PATIENT
  Age: 64 Year
  Sex: Female
  Weight: 82 kg

DRUGS (8)
  1. VIOXX [Suspect]
     Indication: ARTHRITIS
     Route: 048
     Dates: start: 20000724, end: 20040930
  2. VIOXX [Suspect]
     Indication: BACK PAIN
     Route: 048
     Dates: start: 20000724, end: 20040930
  3. ZESTRIL [Concomitant]
     Route: 065
  4. HYDROCHLOROTHIAZIDE [Concomitant]
     Route: 065
  5. SEPTRA [Concomitant]
     Route: 065
  6. CLONIDINE [Concomitant]
     Route: 065
  7. LEXAPRO [Concomitant]
     Route: 065
  8. TYLENOL (CAPLET) [Concomitant]
     Route: 065

REACTIONS (22)
  - DEHYDRATION [None]
  - DELIRIUM [None]
  - DEPRESSION [None]
  - DERMATITIS ALLERGIC [None]
  - DRY MOUTH [None]
  - HAEMORRHOIDS [None]
  - HEADACHE [None]
  - HYPERLIPIDAEMIA [None]
  - HYPERTENSION [None]
  - HYPOTENSION [None]
  - INCREASED TENDENCY TO BRUISE [None]
  - INFECTION [None]
  - INFLUENZA [None]
  - LACUNAR INFARCTION [None]
  - NECK PAIN [None]
  - NIGHT SWEATS [None]
  - NODAL RHYTHM [None]
  - SCLERAL DISORDER [None]
  - STRESS [None]
  - TRANSIENT ISCHAEMIC ATTACK [None]
  - UPPER RESPIRATORY TRACT INFECTION [None]
  - URINARY TRACT INFECTION [None]
